FAERS Safety Report 11417329 (Version 1)
Quarter: 2015Q3

REPORT INFORMATION
  Report Type: Spontaneous
  Country: US (occurrence: US)
  Receive Date: 20150825
  Receipt Date: 20150825
  Transmission Date: 20151125
  Serious: No
  Sender: FDA-Public Use
  Company Number: US-BRISTOL-MYERS SQUIBB COMPANY-BMS-2015-055195

PATIENT
  Sex: Female

DRUGS (2)
  1. OLIVE OIL [Suspect]
     Active Substance: OLIVE OIL
     Indication: PRODUCT USED FOR UNKNOWN INDICATION
     Route: 065
  2. COUMADIN [Suspect]
     Active Substance: WARFARIN SODIUM
     Indication: PRODUCT USED FOR UNKNOWN INDICATION
     Dosage: 3 MG, UNK
     Route: 048

REACTIONS (3)
  - International normalised ratio fluctuation [Unknown]
  - Wrong technique in product usage process [Unknown]
  - Food interaction [Unknown]
